FAERS Safety Report 8732495 (Version 2)
Quarter: 2012Q4

REPORT INFORMATION
  Report Type: 
  Country: MX (occurrence: MX)
  Receive Date: 20120820
  Receipt Date: 20121015
  Transmission Date: 20130627
  Serious: Yes (Hospitalization, Other)
  Sender: FDA-Public Use
  Company Number: PHHY2012MX071496

PATIENT
  Age: 77 Year
  Sex: Female

DRUGS (2)
  1. CO-DIOVAN [Suspect]
     Indication: HYPERTENSION
     Dosage: 1 DF (160 mg vals/25 mg hydr), Daily
     Dates: start: 200909
  2. CO-DIOVAN [Suspect]
     Dosage: 0.5 DF, (160 mg vals, 12.5 mg hydr)daily
     Dates: start: 201208

REACTIONS (3)
  - Haemobilia [Recovering/Resolving]
  - Bile duct stone [Recovered/Resolved]
  - Renal neoplasm [Not Recovered/Not Resolved]
